FAERS Safety Report 11212981 (Version 1)
Quarter: 2015Q2

REPORT INFORMATION
  Report Type: Spontaneous
  Country: None (occurrence: None)
  Receive Date: 20150622
  Receipt Date: 20150622
  Transmission Date: 20150821
  Serious: Yes (Disabling)
  Sender: FDA-Public Use
  Company Number: None

PATIENT
  Age: 36 Year
  Sex: Male

DRUGS (8)
  1. TRAZODONIUMCHLORID [Concomitant]
  2. NIACINAMIDE [Concomitant]
     Active Substance: NIACINAMIDE
  3. GABAPENTIN (GABAGAMMA) [Suspect]
     Active Substance: GABAPENTIN
     Indication: NEURALGIA
     Route: 048
  4. GABAPENTIN (GABAGAMMA) [Suspect]
     Active Substance: GABAPENTIN
     Indication: MUSCLE SPASMS
     Route: 048
  5. PRAMIPEXOLE [Concomitant]
     Active Substance: PRAMIPEXOLE
  6. GABA [Concomitant]
     Active Substance: .GAMMA.-AMINOBUTYRIC ACID
  7. CLONAZEPAM. [Concomitant]
     Active Substance: CLONAZEPAM
  8. BACLOFEN. [Concomitant]
     Active Substance: BACLOFEN

REACTIONS (1)
  - Acne [None]

NARRATIVE: CASE EVENT DATE: 20150620
